FAERS Safety Report 7912655-5 (Version None)
Quarter: 2011Q4

REPORT INFORMATION
  Report Type: 
  Country: None (occurrence: None)
  Receive Date: 20111114
  Receipt Date: 20111103
  Transmission Date: 20120403
  Serious: Yes (Other)
  Sender: FDA-Public Use
  Company Number: DE-CUBIST-2011S1000774

PATIENT
  Age: 72 Year
  Sex: Male
  Weight: 80 kg

DRUGS (2)
  1. CUBICIN [Suspect]
     Route: 042
     Dates: start: 20110328, end: 20110408
  2. CUBICIN [Suspect]
     Indication: ABDOMINAL INFECTION
     Route: 042
     Dates: start: 20110328, end: 20110408

REACTIONS (3)
  - BLOOD CREATININE INCREASED [None]
  - HEART RATE INCREASED [None]
  - URINE OUTPUT DECREASED [None]
